FAERS Safety Report 8795481 (Version 1)
Quarter: 2012Q4

REPORT INFORMATION
  Report Type: Report from Study
  Country: GB (occurrence: GB)
  Receive Date: 20120917
  Receipt Date: 20120917
  Transmission Date: 20130627
  Serious: Yes (Hospitalization)
  Sender: FDA-Public Use
  Company Number: GB-PFIZER INC-2012221054

PATIENT
  Age: 75 Year
  Sex: Male
  Weight: 74.2 kg

DRUGS (10)
  1. IRINOTECAN HCL [Suspect]
     Indication: COLORECTAL CANCER METASTATIC
     Dosage: 342 mg, 2x/week
     Route: 042
     Dates: start: 20120619, end: 20120823
  2. FLUOROURACIL [Suspect]
     Indication: COLORECTAL CANCER METASTATIC
     Dosage: 5320 mg, 2x/week
     Route: 042
     Dates: start: 20120619, end: 20120823
  3. TINZAPARIN SODIUM [Concomitant]
     Dosage: 4500 IU, UNK
     Dates: start: 20120806
  4. DIGOXIN [Concomitant]
     Dosage: 62.5 ug, UNK
     Dates: start: 20120808
  5. METOCLOPRAMIDE [Concomitant]
     Dosage: 60 mg, UNK
     Dates: start: 20120809
  6. SODIUM CHLORIDE [Concomitant]
     Dosage: 20 ml, UNK
     Dates: start: 20120809
  7. BISOPROLOL [Concomitant]
     Dosage: 1.25 mg, UNK
     Dates: start: 20120809
  8. LOPERAMIDE [Concomitant]
     Dosage: 6 mg, UNK
     Dates: start: 20120809
  9. TAZOCIN [Concomitant]
     Dosage: 14.4 g, UNK
     Dates: start: 20120808
  10. CIPROFLOXACIN [Concomitant]
     Dosage: 1 g, UNK
     Dates: start: 20120806

REACTIONS (1)
  - Pneumonitis [Not Recovered/Not Resolved]
